FAERS Safety Report 19865821 (Version 1)
Quarter: 2021Q3

REPORT INFORMATION
  Report Type: Spontaneous
  Country: DE (occurrence: DE)
  Receive Date: 20210922
  Receipt Date: 20210922
  Transmission Date: 20211014
  Serious: Yes (Death, Life-Threatening, Hospitalization, Other)
  Sender: FDA-Public Use
  Company Number: DE-CELLTRION INC.-2021DE012633

PATIENT

DRUGS (7)
  1. RITUXIMAB. [Suspect]
     Active Substance: RITUXIMAB
     Indication: DIFFUSE LARGE B-CELL LYMPHOMA
     Dosage: UNK, 6 CYCLE
     Route: 042
     Dates: start: 201812
  2. VINCRISTINE [Suspect]
     Active Substance: VINCRISTINE
     Indication: DIFFUSE LARGE B-CELL LYMPHOMA
     Dosage: UNK, 6 CYCLE
     Route: 042
     Dates: start: 201812
  3. PREDNISOLONE. [Suspect]
     Active Substance: PREDNISOLONE
     Indication: DIFFUSE LARGE B-CELL LYMPHOMA
     Dosage: UNK, 6 CYCLE
     Route: 042
     Dates: start: 201812
  4. DOXORUBICIN [Suspect]
     Active Substance: DOXORUBICIN
     Indication: DIFFUSE LARGE B-CELL LYMPHOMA
     Dosage: UNK, 6 CYCLE
     Route: 042
     Dates: start: 201812
  5. MIRTAZAPINE. [Concomitant]
     Active Substance: MIRTAZAPINE
     Dosage: DAILY TARGET DOSE OF 45 MG (THREE TIMES/DAY)
  6. CIDOFOVIR. [Concomitant]
     Active Substance: CIDOFOVIR
     Dosage: INFUSIONS
  7. CYCLOPHOSPHAMIDE. [Suspect]
     Active Substance: CYCLOPHOSPHAMIDE
     Indication: DIFFUSE LARGE B-CELL LYMPHOMA
     Dosage: UNK, 6 CYCLE
     Route: 042
     Dates: start: 201812

REACTIONS (7)
  - Immune reconstitution inflammatory syndrome [Fatal]
  - Pleocytosis [Fatal]
  - Progressive multifocal leukoencephalopathy [Fatal]
  - Quadriparesis [Fatal]
  - Dysphagia [Fatal]
  - Hemiparesis [Fatal]
  - JC virus infection [Fatal]

NARRATIVE: CASE EVENT DATE: 201911
